FAERS Safety Report 6622274-9 (Version None)
Quarter: 2010Q1

REPORT INFORMATION
  Report Type: 
  Country: None (occurrence: None)
  Receive Date: 20100310
  Receipt Date: 20100305
  Transmission Date: 20100710
  Serious: Yes (Hospitalization)
  Sender: FDA-Public Use
  Company Number: FR-WYE-G05657310

PATIENT
  Sex: Female

DRUGS (4)
  1. EFFEXOR [Suspect]
     Route: 048
     Dates: end: 20100208
  2. SERESTA [Suspect]
     Route: 048
     Dates: end: 20100205
  3. LAMICTAL CD [Suspect]
     Route: 048
     Dates: end: 20100205
  4. ARICEPT [Suspect]
     Route: 048
     Dates: end: 20100208

REACTIONS (8)
  - EOSINOPHILIA [None]
  - FALL [None]
  - GAMMA-GLUTAMYLTRANSFERASE INCREASED [None]
  - LYMPHOCYTE COUNT DECREASED [None]
  - PYREXIA [None]
  - RASH MACULO-PAPULAR [None]
  - TOXIC SKIN ERUPTION [None]
  - TRANSAMINASES INCREASED [None]
